FAERS Safety Report 23024350 (Version 1)
Quarter: 2023Q4

REPORT INFORMATION
  Report Type: Report from Study
  Country: CA (occurrence: CA)
  Receive Date: 20231004
  Receipt Date: 20231004
  Transmission Date: 20240110
  Serious: Yes (Other)
  Sender: FDA-Public Use
  Company Number: CA-002147023-NVSC2021CA012921

PATIENT
  Age: 27 Year
  Sex: Female

DRUGS (1)
  1. AIMOVIG [Suspect]
     Active Substance: ERENUMAB-AOOE
     Indication: Migraine
     Dosage: 140 MILLIGRAM, QMO
     Route: 065
     Dates: start: 20190215

REACTIONS (7)
  - Syncope [Recovered/Resolved]
  - Seizure [Recovered/Resolved]
  - Blood sodium decreased [Unknown]
  - Cortisol abnormal [Unknown]
  - Electrocardiogram abnormal [Unknown]
  - Headache [Unknown]
  - Product dose omission in error [Unknown]
